FAERS Safety Report 17655980 (Version 5)
Quarter: 2020Q2

REPORT INFORMATION
  Report Type: Spontaneous
  Country: US (occurrence: US)
  Receive Date: 20200410
  Receipt Date: 20200521
  Transmission Date: 20200713
  Serious: Yes (Other)
  Sender: FDA-Public Use
  Company Number: US-CELGENEUS-USA-20200401965

PATIENT
  Sex: Female

DRUGS (1)
  1. THALOMID [Suspect]
     Active Substance: THALIDOMIDE
     Indication: BONE CANCER
     Dosage: 200 MILLIGRAM
     Route: 048

REACTIONS (1)
  - Human chorionic gonadotropin increased [Not Recovered/Not Resolved]
